FAERS Safety Report 11025598 (Version 1)
Quarter: 2015Q2

REPORT INFORMATION
  Report Type: Spontaneous
  Country: US (occurrence: None)
  Receive Date: 20150413
  Receipt Date: 20150413
  Transmission Date: 20150821
  Serious: No
  Sender: FDA-Public Use
  Company Number: None

PATIENT
  Age: 54 Year
  Sex: Female

DRUGS (18)
  1. DOCUSATE SODIUIM (COLACE) [Concomitant]
  2. CPDR SR CAP [Concomitant]
  3. ALBUTEROL (PROAIR HFA) [Concomitant]
  4. HYDROCODONE-IBUPROFEN (VICOPROFEN) [Concomitant]
  5. AMPYRA [Suspect]
     Active Substance: DALFAMPRIDINE
     Indication: MULTIPLE SCLEROSIS
     Route: 048
     Dates: start: 201101
  6. HYDROCODONE [Concomitant]
     Active Substance: HYDROCODONE
  7. TERBUNALINE (BRICANYL) [Concomitant]
  8. NITROGLICERYN (NITROSTAT) [Concomitant]
  9. FLUTICASONE (FLONASE) [Concomitant]
  10. BECLOMETHASONE DIPROPIONATE (QVAR) [Concomitant]
  11. AUTOINJECTOR [Concomitant]
  12. DIAZEPAM (VALIUM) [Concomitant]
  13. SALMETEROL (OSEREVENT DISKUS) [Concomitant]
  14. PREGABALIN (LYRICA) [Concomitant]
  15. ACETAMINOPHEN (NORCO) [Concomitant]
  16. FAMOTIDINE. [Concomitant]
     Active Substance: FAMOTIDINE
  17. OMEPRAZOLE (PRILOSEC) [Concomitant]
  18. EPINEPHRINE (EPIPEN 2-PAK) [Concomitant]

REACTIONS (4)
  - Red blood cell count abnormal [None]
  - Laboratory test abnormal [None]
  - Haematocrit abnormal [None]
  - Haemoglobin abnormal [None]

NARRATIVE: CASE EVENT DATE: 20150225
